FAERS Safety Report 6790956-4 (Version None)
Quarter: 2010Q2

REPORT INFORMATION
  Report Type: 
  Country: None (occurrence: None)
  Receive Date: 20100624
  Receipt Date: 20100615
  Transmission Date: 20101027
  Serious: Yes (Hospitalization)
  Sender: FDA-Public Use
  Company Number: CA-MERCK-1006USA02323

PATIENT
  Age: 60 Year
  Sex: Female
  Weight: 45 kg

DRUGS (12)
  1. JANUVIA [Suspect]
     Route: 048
  2. ALLOPURINOL [Concomitant]
     Route: 065
  3. BISOPROLOL [Concomitant]
     Route: 065
  4. CRESTOR [Concomitant]
     Route: 065
  5. DIGOXIN SEMI [Concomitant]
     Route: 065
  6. EPREX [Concomitant]
     Route: 065
  7. FERROUS FUMARATE [Concomitant]
     Route: 065
  8. FUROSEMIDE [Concomitant]
     Route: 065
  9. GLICLAZIDE [Concomitant]
     Route: 065
  10. LEVOTHYROXINE SODIUM [Concomitant]
     Route: 065
  11. RAMIPRIL [Concomitant]
     Route: 065
  12. WARFARIN [Concomitant]
     Route: 065

REACTIONS (11)
  - ALANINE AMINOTRANSFERASE INCREASED [None]
  - ASPARTATE AMINOTRANSFERASE INCREASED [None]
  - BLOOD ALKALINE PHOSPHATASE INCREASED [None]
  - BLOOD CREATINE INCREASED [None]
  - DRUG INTERACTION [None]
  - GAMMA-GLUTAMYLTRANSFERASE INCREASED [None]
  - LIPASE INCREASED [None]
  - LIVER FUNCTION TEST ABNORMAL [None]
  - MUSCULAR WEAKNESS [None]
  - PAIN IN EXTREMITY [None]
  - RENAL FAILURE ACUTE [None]
